FAERS Safety Report 6012379-8 (Version None)
Quarter: 2008Q4

REPORT INFORMATION
  Report Type: 
  Country: None (occurrence: None)
  Receive Date: 20081218
  Receipt Date: 20080924
  Transmission Date: 20090506
  Serious: No
  Sender: FDA-Public Use
  Company Number: US-ASTRAZENECA-2008UW20124

PATIENT
  Sex: Female

DRUGS (5)
  1. SYMBICORT [Suspect]
     Dosage: 160 / 4.5 MCG
     Route: 055
  2. ALBUTEROL [Concomitant]
  3. SINGULAIR [Concomitant]
  4. PULMICORT-100 [Concomitant]
  5. AGRYLIN [Concomitant]

REACTIONS (1)
  - DYSPNOEA [None]
